FAERS Safety Report 6261835-6 (Version None)
Quarter: 2009Q3

REPORT INFORMATION
  Report Type: 
  Country: None (occurrence: None)
  Receive Date: 20090709
  Receipt Date: 20090630
  Transmission Date: 20100115
  Serious: Yes (Other)
  Sender: FDA-Public Use
  Company Number: A0704917A

PATIENT
  Age: 60 Year
  Sex: Female

DRUGS (4)
  1. REQUIP [Suspect]
     Indication: PARKINSON'S DISEASE
     Route: 048
     Dates: start: 20001201
  2. TASMAR [Suspect]
  3. CARBIDOPA AND LEVODOPA [Concomitant]
  4. THYROID MEDICATION [Concomitant]

REACTIONS (3)
  - DYSKINESIA [None]
  - SYNCOPE [None]
  - TREATMENT NONCOMPLIANCE [None]
